FAERS Safety Report 8306918-1 (Version None)
Quarter: 2012Q2

REPORT INFORMATION
  Report Type: 
  Country: None (occurrence: None)
  Receive Date: 20120420
  Receipt Date: 20120417
  Transmission Date: 20120825
  Serious: Yes (Hospitalization)
  Sender: FDA-Public Use
  Company Number: 2011SP046463

PATIENT
  Age: 24 Year
  Sex: Female
  Weight: 65.7716 kg

DRUGS (2)
  1. NUVARING [Suspect]
     Indication: CONTRACEPTION
     Dates: start: 20090701, end: 20091002
  2. ADDERALL XR 10 [Concomitant]

REACTIONS (17)
  - ANXIETY [None]
  - PAIN [None]
  - AFFECTIVE DISORDER [None]
  - MUSCULOSKELETAL CHEST PAIN [None]
  - PAIN IN EXTREMITY [None]
  - SEXUAL ABUSE [None]
  - MATERNAL EXPOSURE DURING PREGNANCY [None]
  - HAND FRACTURE [None]
  - ACUTE SINUSITIS [None]
  - EPISTAXIS [None]
  - HEADACHE [None]
  - BRONCHITIS [None]
  - FALL [None]
  - PREGNANCY ON ORAL CONTRACEPTIVE [None]
  - PULMONARY EMBOLISM [None]
  - PULMONARY INFARCTION [None]
  - INSOMNIA [None]
